FAERS Safety Report 21345715 (Version 1)
Quarter: 2022Q3

REPORT INFORMATION
  Report Type: Report from Study
  Country: US (occurrence: None)
  Receive Date: 20220916
  Receipt Date: 20220916
  Transmission Date: 20221026
  Serious: Yes (Hospitalization)
  Sender: FDA-Public Use
  Company Number: 2022A147458

PATIENT
  Sex: Male
  Weight: 32.2 kg

DRUGS (21)
  1. KOSELUGO [Suspect]
     Active Substance: SELUMETINIB
     Indication: Brain neoplasm malignant
     Route: 048
     Dates: start: 20220116
  2. CORTEF [Concomitant]
     Active Substance: HYDROCORTISONE
  3. DESMOPRESSIN [Concomitant]
     Active Substance: DESMOPRESSIN
  4. DIAZEPAM [Concomitant]
     Active Substance: DIAZEPAM
  5. FERROUS FUMARATE [Concomitant]
     Active Substance: FERROUS FUMARATE
  6. GAMMA AMINOBUTYRIC ACID [Concomitant]
  7. HYDROCORTISONE [Concomitant]
     Active Substance: HYDROCORTISONE
     Dosage: 2.5
  8. HYDROCORTISONE SODIUM SUCC [Concomitant]
  9. HYDROXYZINE PAMOATE [Concomitant]
     Active Substance: HYDROXYZINE PAMOATE
  10. KENALOG [Concomitant]
     Active Substance: TRIAMCINOLONE ACETONIDE
  11. LIDOCAINE\PRILOCAINE [Concomitant]
     Active Substance: LIDOCAINE\PRILOCAINE
     Dosage: EXTERNAL CREAM 2.5-2.5%
  12. MAGNESIUM GLYCINATE PLUS [Concomitant]
  13. MVASI [Concomitant]
     Active Substance: BEVACIZUMAB-AWWB
  14. NP THYROID [Concomitant]
     Active Substance: LEVOTHYROXINE\LIOTHYRONINE
  15. OXYTOCIN [Concomitant]
     Active Substance: OXYTOCIN
     Dosage: 10 UNIT
     Route: 065
  16. ONDANSETRON [Concomitant]
     Active Substance: ONDANSETRON
     Dosage: 4 MG/5 ML
  17. SYNTHROID [Concomitant]
     Active Substance: LEVOTHYROXINE SODIUM
  18. VIMPAT [Concomitant]
     Active Substance: LACOSAMIDE
  19. VITAMIN B COMPLEX-C [Concomitant]
  20. VITAMIN D3 [Concomitant]
     Active Substance: CHOLECALCIFEROL
  21. ZYRTEC [Concomitant]
     Active Substance: CETIRIZINE HYDROCHLORIDE

REACTIONS (6)
  - Fatigue [Recovering/Resolving]
  - Muscular weakness [Unknown]
  - Carbon dioxide increased [Recovered/Resolved]
  - Apnoeic attack [Recovering/Resolving]
  - Snoring [Recovering/Resolving]
  - Asthenia [Unknown]
